FAERS Safety Report 7421477-3 (Version None)
Quarter: 2011Q1

REPORT INFORMATION
  Report Type: 
  Country: None (occurrence: None)
  Receive Date: 20110302
  Receipt Date: 20101203
  Transmission Date: 20110831
  Serious: No
  Sender: FDA-Public Use
  Company Number: 023250

PATIENT
  Age: 70 Year
  Sex: Female
  Weight: 77.1 kg

DRUGS (4)
  1. CIMZIA [Suspect]
     Indication: RHEUMATOID ARTHRITIS
     Dosage: (400 MG 1X/2 WEEKS, 2 SYRINGES SUBCUTANEOUS)
     Route: 058
     Dates: start: 20101102
  2. WELLBUTRIN XL [Concomitant]
  3. MISOPROSTOL [Concomitant]
  4. NAPROXEN SODIUM [Concomitant]

REACTIONS (3)
  - INJECTION SITE OEDEMA [None]
  - PRURITUS [None]
  - RASH [None]
